FAERS Safety Report 4619166-3 (Version None)
Quarter: 2005Q1

REPORT INFORMATION
  Report Type: 
  Country: None (occurrence: None)
  Receive Date: 20050325
  Receipt Date: 20050316
  Transmission Date: 20050727
  Serious: Yes (Hospitalization)
  Sender: FDA-Public Use
  Company Number: FR-SANOFI-SYNTHELABO-F01200500421

PATIENT
  Sex: Male
  Weight: 59.5 kg

DRUGS (3)
  1. OXALIPLATIN [Suspect]
     Indication: OESOPHAGEAL CARCINOMA
     Route: 042
     Dates: start: 20050307, end: 20050307
  2. FLUOROURACIL [Suspect]
     Route: 042
     Dates: start: 20050307, end: 20050308
  3. LEUCOVORIN [Suspect]
     Route: 042
     Dates: start: 20050307, end: 20050308

REACTIONS (1)
  - GENERAL PHYSICAL HEALTH DETERIORATION [None]
